FAERS Safety Report 8781322 (Version 2)
Quarter: 2013Q2

REPORT INFORMATION
  Report Type: Spontaneous
  Country: DE (occurrence: DE)
  Receive Date: 20120913
  Receipt Date: 20130503
  Transmission Date: 20140414
  Serious: Yes (Other)
  Sender: FDA-Public Use
  Company Number: DE-NAPPMUNDI-DEU-2012-0009397

PATIENT
  Age: 61 Year
  Sex: Female

DRUGS (21)
  1. TARGIN 40MG/20MG RETARDTABLETTEN [Suspect]
     Indication: PAIN
     Dosage: 40/20MG, BID
     Route: 048
     Dates: start: 20070403
  2. OXYGESIC [Suspect]
     Indication: PAIN
     Dosage: UNK
     Dates: start: 20050106
  3. PANTOZOL                           /01263204/ [Concomitant]
     Dosage: 40 MG, Q48H
     Route: 048
  4. VERAHEXAL [Concomitant]
     Dosage: 240 MG, DAILY
  5. MICARDIS PLUS [Concomitant]
     Dosage: 80 MG, UNK
  6. AMINEURIN [Concomitant]
     Dosage: UNK, BID
     Route: 048
  7. SIMVAHEXAL [Concomitant]
     Dosage: 40 MG, PM
     Route: 048
  8. TORASEMID [Concomitant]
     Dosage: 10 MG, AM
  9. EUCREAS [Concomitant]
     Dosage: 50000 MG, UNK
  10. JALRA [Concomitant]
     Indication: DIABETES MELLITUS
     Dosage: 50 MG, AM
     Route: 048
  11. DEKRISTOL [Concomitant]
     Dosage: 20000 IU, WEEKLY
     Route: 048
  12. EINSALPHA [Concomitant]
     Dosage: 0.25 MCG, PM
     Route: 048
  13. ALLOPURINOL [Concomitant]
     Dosage: 150 MG, AM
     Route: 048
     Dates: start: 201212
  14. VERAPAMIL [Concomitant]
     Dosage: 180 MG, DAILY
     Route: 048
  15. VIANI [Concomitant]
     Dosage: 50 MCG, AM
     Route: 055
  16. VIANI [Concomitant]
     Dosage: 500 MCG, AM
     Route: 025
  17. XUSAL [Concomitant]
     Dosage: 5 MG, AC LUNCH
     Route: 048
  18. LACTULOSE [Concomitant]
     Dosage: UNK, PRN
     Route: 048
  19. FERRO SANOL DUODENAL [Concomitant]
     Dosage: 1 UNK, PM
     Route: 048
  20. SINGULAIR [Concomitant]
     Dosage: UNK, PM
     Route: 048
  21. MICARDIS [Concomitant]
     Dosage: 40 MG, BID
     Route: 048

REACTIONS (2)
  - Glomerular filtration rate abnormal [Not Recovered/Not Resolved]
  - Blood creatinine increased [Not Recovered/Not Resolved]
